FAERS Safety Report 9956246 (Version 1)
Quarter: 2014Q1

REPORT INFORMATION
  Report Type: Report from Study
  Country: US (occurrence: US)
  Receive Date: 20140304
  Receipt Date: 20140304
  Transmission Date: 20141002
  Serious: No
  Sender: FDA-Public Use
  Company Number: US-ABBVIE-13P-163-1084849-00

PATIENT
  Age: 28 Year
  Sex: Female

DRUGS (4)
  1. HUMIRA [Suspect]
     Indication: CROHN^S DISEASE
     Dosage: LOADING DOSE DAY 1
     Dates: start: 20130415
  2. HUMIRA [Suspect]
     Dosage: LOADING DOSE
  3. AVIANE [Concomitant]
     Indication: ACNE
     Dosage: 0.1MG/0.02MG
  4. GLYCOPYRROL [Concomitant]
     Indication: HYPERHIDROSIS
     Dosage: 1MG 3 DAY

REACTIONS (1)
  - Weight decreased [Not Recovered/Not Resolved]
